FAERS Safety Report 18785120 (Version 4)
Quarter: 2021Q2

REPORT INFORMATION
  Report Type: Spontaneous
  Country: AU (occurrence: AU)
  Receive Date: 20210125
  Receipt Date: 20210630
  Transmission Date: 20210717
  Serious: Yes (Hospitalization, Other)
  Sender: FDA-Public Use
  Company Number: AU-SA-2021SA014991

PATIENT
  Age: 26 Year
  Sex: Female

DRUGS (8)
  1. METARAMINOL TARTRATE [Suspect]
     Active Substance: METARAMINOL BITARTRATE
     Indication: VASOCONSTRICTION
     Dosage: SOLUTION
  2. OXYTOCIN. [Suspect]
     Active Substance: OXYTOCIN
     Indication: LABOUR INDUCTION
     Dosage: 10 IU
  3. CLEXANE [Suspect]
     Active Substance: ENOXAPARIN SODIUM
     Dosage: UNK
  4. MORPHINE SULFATE. [Suspect]
     Active Substance: MORPHINE SULFATE
     Indication: PAIN
     Dosage: UNK
  5. VOLTAREN ACTI [Concomitant]
     Active Substance: DICLOFENAC POTASSIUM
     Indication: PRODUCT USED FOR UNKNOWN INDICATION
  6. PANADOL [Concomitant]
     Active Substance: ACETAMINOPHEN
     Indication: ANALGESIC THERAPY
  7. MORPHINE SULFATE. [Suspect]
     Active Substance: MORPHINE SULFATE
     Route: 058
  8. ENDONE [Concomitant]
     Active Substance: OXYCODONE HYDROCHLORIDE
     Indication: ANALGESIC THERAPY

REACTIONS (18)
  - Muscular weakness [Recovering/Resolving]
  - Peroneal nerve injury [Recovering/Resolving]
  - Cellulitis [Not Recovered/Not Resolved]
  - Neurological symptom [Unknown]
  - Myalgia [Recovering/Resolving]
  - Immobile [Unknown]
  - Maternal exposure during pregnancy [Unknown]
  - Peripheral swelling [Recovering/Resolving]
  - Pain in extremity [Recovering/Resolving]
  - Bone pain [Recovering/Resolving]
  - Tenderness [Recovering/Resolving]
  - Erythema [Unknown]
  - Compartment syndrome [Recovering/Resolving]
  - Condition aggravated [Recovering/Resolving]
  - Oedema peripheral [Recovering/Resolving]
  - Hypoaesthesia [Recovering/Resolving]
  - Peroneal nerve palsy [Recovering/Resolving]
  - Paraesthesia [Recovering/Resolving]
